FAERS Safety Report 22241920 (Version 1)
Quarter: 2023Q2

REPORT INFORMATION
  Report Type: Report from Study
  Country: GB (occurrence: GB)
  Receive Date: 20230421
  Receipt Date: 20230421
  Transmission Date: 20230721
  Serious: Yes (Other)
  Sender: FDA-Public Use
  Company Number: GB-002147023-NVSC2023GB088406

PATIENT
  Sex: Female

DRUGS (1)
  1. KESIMPTA [Suspect]
     Active Substance: OFATUMUMAB
     Indication: Multiple sclerosis
     Dosage: 20 MG, QMO (WEEKLY FOR FIRST MONTH (NOT WEEK 3))
     Route: 058
     Dates: start: 20230406

REACTIONS (5)
  - Syncope [Unknown]
  - Malaise [Unknown]
  - Feeling cold [Unknown]
  - Nausea [Unknown]
  - Pyrexia [Unknown]
